FAERS Safety Report 4442015-3 (Version None)
Quarter: 2004Q3

REPORT INFORMATION
  Report Type: 
  Country: None (occurrence: None)
  Receive Date: 20040901
  Receipt Date: 20040819
  Transmission Date: 20050211
  Serious: Yes (Other)
  Sender: FDA-Public Use
  Company Number: 2004058552

PATIENT
  Age: 60 Year
  Sex: Female
  Weight: 68.0396 kg

DRUGS (6)
  1. NEURONTIN [Suspect]
     Indication: NEURALGIA
     Dosage: 300 MG (300 MG, 1 IN 1 D), ORAL
     Route: 048
     Dates: start: 20040817, end: 20040819
  2. PREDNISONE [Concomitant]
  3. ESCITALOPRAM OXALATE [Concomitant]
  4. ULTRACET [Concomitant]
  5. ALPRAZOLAM [Concomitant]
  6. ROFECOXIB [Concomitant]

REACTIONS (8)
  - CHOKING [None]
  - DIARRHOEA [None]
  - DYSGEUSIA [None]
  - DYSPNOEA [None]
  - FEELING ABNORMAL [None]
  - GAIT DISTURBANCE [None]
  - NAUSEA [None]
  - STOMACH DISCOMFORT [None]
